FAERS Safety Report 8481063 (Version 6)
Quarter: 2013Q1

REPORT INFORMATION
  Report Type: Spontaneous
  Country: US (occurrence: US)
  Receive Date: 20120328
  Receipt Date: 20130114
  Transmission Date: 20140127
  Serious: Yes (Hospitalization, Disabling, Other)
  Sender: FDA-Public Use
  Company Number: US-009507513-1203USA03292

PATIENT
  Sex: 0

DRUGS (2)
  1. FOSAMAX [Suspect]
     Indication: OSTEOPENIA
     Dosage: 70 MG, QW
     Route: 048
     Dates: end: 200908
  2. ALENDRONATE SODIUM [Suspect]
     Indication: OSTEOPENIA
     Dosage: 70 MG, QW
     Dates: start: 20090329

REACTIONS (24)
  - Femur fracture [Unknown]
  - Open reduction of fracture [Unknown]
  - Hip fracture [Unknown]
  - Osteoporosis [Unknown]
  - Stress fracture [Unknown]
  - Femur fracture [Unknown]
  - Low turnover osteopathy [Unknown]
  - Blood cholesterol increased [Unknown]
  - Pneumonia [Unknown]
  - Vascular injury [Unknown]
  - Hypertension [Unknown]
  - Bronchiectasis [Unknown]
  - Hilar lymphadenopathy [Unknown]
  - Pleural effusion [Unknown]
  - Scoliosis [Unknown]
  - Aortic arteriosclerosis [Unknown]
  - Arteriosclerosis coronary artery [Unknown]
  - Cardiomegaly [Unknown]
  - Otitis media [Unknown]
  - Tympanic membrane perforation [Unknown]
  - Anaemia [Unknown]
  - Sedation [Unknown]
  - Blood pressure increased [Unknown]
  - Arthralgia [Unknown]
